FAERS Safety Report 7610053-5 (Version None)
Quarter: 2011Q3

REPORT INFORMATION
  Report Type: 
  Country: None (occurrence: None)
  Receive Date: 20110715
  Receipt Date: 20110701
  Transmission Date: 20111222
  Serious: Yes (Other)
  Sender: FDA-Public Use
  Company Number: US-AMGEN-USASP2011030701

PATIENT
  Age: 85 Year
  Sex: Female
  Weight: 48.98 kg

DRUGS (1)
  1. PROLIA [Suspect]
     Indication: OSTEOPOROSIS POSTMENOPAUSAL
     Dosage: 60 MG, Q6MO
     Dates: start: 20100701, end: 20110101

REACTIONS (13)
  - TREMOR [None]
  - DIZZINESS [None]
  - PAIN [None]
  - APTYALISM [None]
  - ASTHENIA [None]
  - DRY MOUTH [None]
  - LIP DRY [None]
  - FATIGUE [None]
  - MALAISE [None]
  - LETHARGY [None]
  - DYSPHAGIA [None]
  - DYSPHONIA [None]
  - BALANCE DISORDER [None]
